FAERS Safety Report 20189527 (Version 1)
Quarter: 2021Q4

REPORT INFORMATION
  Report Type: Spontaneous
  Country: US (occurrence: None)
  Receive Date: 20211215
  Receipt Date: 20211215
  Transmission Date: 20220304
  Serious: Yes (Death)
  Sender: FDA-Public Use
  Company Number: None

PATIENT
  Sex: Female

DRUGS (6)
  1. PROLIA [Suspect]
     Active Substance: DENOSUMAB
     Indication: Osteoporosis
     Dosage: OTHER FREQUENCY : EVERY 6 MONTHS;?
     Route: 058
     Dates: start: 20201110
  2. ACTONEL [Concomitant]
     Active Substance: RISEDRONATE SODIUM
  3. Asa Low Dose [Concomitant]
  4. FORTEO [Concomitant]
     Active Substance: TERIPARATIDE
  5. LIPITOR [Concomitant]
     Active Substance: ATORVASTATIN CALCIUM
  6. One-Daily [Concomitant]

REACTIONS (1)
  - Death [None]
